FAERS Safety Report 14746907 (Version 1)
Quarter: 2018Q2

REPORT INFORMATION
  Report Type: Spontaneous
  Country: US (occurrence: US)
  Receive Date: 20180405
  Receipt Date: 20180405
  Transmission Date: 20180711
  Serious: Yes (Hospitalization)
  Sender: FDA-Public Use
  Company Number: None

PATIENT
  Age: 72 Year
  Sex: Male

DRUGS (19)
  1. REPATHA [Suspect]
     Active Substance: EVOLOCUMAB
     Indication: CORONARY ARTERY DISEASE
     Route: 058
     Dates: start: 20170322
  2. VITAMIN K [Concomitant]
     Active Substance: PHYTONADIONE
  3. GABAPENTIN. [Concomitant]
     Active Substance: GABAPENTIN
  4. FLONASE [Concomitant]
     Active Substance: FLUTICASONE PROPIONATE
  5. ALBUTEROL. [Concomitant]
     Active Substance: ALBUTEROL
  6. VITAMIN D3 [Concomitant]
     Active Substance: CHOLECALCIFEROL
  7. METOPROLOL TARTRATE. [Concomitant]
     Active Substance: METOPROLOL TARTRATE
  8. CLARITIN [Concomitant]
     Active Substance: LORATADINE
  9. ASPIRIN. [Concomitant]
     Active Substance: ASPIRIN
  10. GLIPIZIDE. [Concomitant]
     Active Substance: GLIPIZIDE
  11. FISH OIL [Concomitant]
     Active Substance: FISH OIL
  12. ZANAFLEX [Concomitant]
     Active Substance: TIZANIDINE HYDROCHLORIDE
  13. VITAMIN C [Concomitant]
     Active Substance: ASCORBIC ACID
  14. LISINOPRIL. [Concomitant]
     Active Substance: LISINOPRIL
  15. HYDROXY PAM [Concomitant]
  16. LOSARTAN POT [Concomitant]
     Active Substance: LOSARTAN POTASSIUM
  17. NITROSTAT [Concomitant]
     Active Substance: NITROGLYCERIN
  18. LASIX [Concomitant]
     Active Substance: FUROSEMIDE
  19. ISOSORBDIN [Concomitant]

REACTIONS (2)
  - Carotid artery disease [None]
  - Tonsil cancer [None]

NARRATIVE: CASE EVENT DATE: 20180323
